FAERS Safety Report 5858947-5 (Version None)
Quarter: 2008Q3

REPORT INFORMATION
  Report Type: 
  Country: None (occurrence: None)
  Receive Date: 20080825
  Receipt Date: 20080814
  Transmission Date: 20090109
  Serious: Yes (Other)
  Sender: FDA-Public Use
  Company Number: 2008SP016826

PATIENT
  Age: 6 Year
  Sex: Male

DRUGS (2)
  1. MIRALAX [Suspect]
     Indication: DRUG USE FOR UNKNOWN INDICATION
     Dosage: PO
     Route: 048
  2. MIRALAX [Suspect]
     Indication: OFF LABEL USE
     Dosage: PO
     Route: 048

REACTIONS (2)
  - DIARRHOEA [None]
  - HAEMATOCHEZIA [None]
